FAERS Safety Report 13100184 (Version 1)
Quarter: 2017Q1

REPORT INFORMATION
  Report Type: Spontaneous
  Country: US (occurrence: US)
  Receive Date: 20170110
  Receipt Date: 20170110
  Transmission Date: 20170428
  Serious: No
  Sender: FDA-Public Use
  Company Number: US-ASTRAZENECA-2017SE01525

PATIENT

DRUGS (11)
  1. CELEBREX [Suspect]
     Active Substance: CELECOXIB
     Route: 048
  2. HYDROCODONE BITARTRATE AND ACETAMINOPHEN [Concomitant]
     Active Substance: ACETAMINOPHEN\HYDROCODONE BITARTRATE
     Dosage: 7-5-326 MG 1 TABLET NEEDED ORALLY EVERY 12 HOURS
  3. ROBAXIN [Concomitant]
     Active Substance: METHOCARBAMOL
     Dosage: 500MG, AS REQUIRED
  4. TOPROL XL [Suspect]
     Active Substance: METOPROLOL SUCCINATE
     Route: 048
  5. LOSARTAN POTASSIUM HCTZ [Concomitant]
     Dosage: 100-12.5 MG 1 TABLET ORALLY ONCE
  6. MUPIROCIN. [Concomitant]
     Active Substance: MUPIROCIN
     Dosage: : 2 % APPLICATION TO AFFECTED AREA EXTERNALLY THREE TIMES A DAY
  7. FLONASE [Concomitant]
     Active Substance: FLUTICASONE PROPIONATE
     Dosage: EACH NOSTRIL NASALLY ONCE A DAY
  8. LYRICA [Suspect]
     Active Substance: PREGABALIN
     Indication: RHEUMATOID ARTHRITIS
     Route: 048
  9. PRAVACHOL [Concomitant]
     Active Substance: PRAVASTATIN SODIUM
     Dosage: 20 MG TABLET ORALLY ONCE A DAY
  10. MECLIZINE HCL [Concomitant]
     Active Substance: MECLIZINE HYDROCHLORIDE
     Dosage: 25 MG,AS NEEDED ORALLY THREE TIMES A. DAY
  11. CARVEDILOL. [Concomitant]
     Active Substance: CARVEDILOL
     Dosage: 12.5 MG 1 TABLET FOOD ORALLY TWICE A DAY

REACTIONS (2)
  - Nausea [Unknown]
  - Drug hypersensitivity [Unknown]
